FAERS Safety Report 25674625 (Version 2)
Quarter: 2025Q3

REPORT INFORMATION
  Report Type: Report from Study
  Country: US (occurrence: US)
  Receive Date: 20250813
  Receipt Date: 20250829
  Transmission Date: 20251021
  Serious: Yes (Other)
  Sender: RANBAXY
  Company Number: US-SUN PHARMACEUTICAL INDUSTRIES LTD-2025R1-522154

PATIENT
  Age: 56 Year
  Sex: Female

DRUGS (3)
  1. DIAMOX SEQUELS [Suspect]
     Active Substance: ACETAZOLAMIDE
     Indication: Paralysis
     Route: 065
     Dates: start: 202506
  2. KEVEYIS [Suspect]
     Active Substance: DICHLORPHENAMIDE
     Indication: Paralysis
     Dosage: 25 MILLIGRAM, QD
     Route: 065
     Dates: start: 20250628
  3. KEVEYIS [Suspect]
     Active Substance: DICHLORPHENAMIDE
     Dosage: 50 MILLIGRAM, QD
     Route: 065
     Dates: start: 2025

REACTIONS (3)
  - Neuropathy peripheral [Not Recovered/Not Resolved]
  - Joint instability [Not Recovered/Not Resolved]
  - Fatigue [Not Recovered/Not Resolved]

NARRATIVE: CASE EVENT DATE: 20250601
